FAERS Safety Report 12670640 (Version 1)
Quarter: 2016Q3

REPORT INFORMATION
  Report Type: Spontaneous
  Country: US (occurrence: US)
  Receive Date: 20160822
  Receipt Date: 20160822
  Transmission Date: 20161109
  Serious: No
  Sender: FDA-Public Use
  Company Number: US-TEVA-589797USA

PATIENT
  Sex: Male

DRUGS (2)
  1. SERTRALINE [Suspect]
     Active Substance: SERTRALINE HYDROCHLORIDE
     Indication: IRRITABILITY
     Dosage: 150 MILLIGRAM DAILY;
     Route: 065
  2. SERTRALINE [Suspect]
     Active Substance: SERTRALINE HYDROCHLORIDE
     Indication: PAIN

REACTIONS (3)
  - Product substitution issue [Unknown]
  - Drug effect variable [Unknown]
  - Tinnitus [Recovered/Resolved]
